FAERS Safety Report 23436666 (Version 1)
Quarter: 2024Q1

REPORT INFORMATION
  Report Type: Spontaneous
  Country: FR (occurrence: FR)
  Receive Date: 20240124
  Receipt Date: 20240124
  Transmission Date: 20240410
  Serious: Yes (Death, Life-Threatening, Hospitalization, Other)
  Sender: FDA-Public Use
  Company Number: FR-MLMSERVICE-20240104-4760596-1

PATIENT
  Age: 21 Year
  Sex: Female

DRUGS (3)
  1. METHYLPREDNISOLONE [Suspect]
     Active Substance: METHYLPREDNISOLONE
     Indication: Central nervous system lesion
     Dosage: HIGH DOSE
     Route: 065
  2. IBUPROFEN [Concomitant]
     Active Substance: IBUPROFEN
     Indication: Headache
  3. ACETAMINOPHEN [Concomitant]
     Active Substance: ACETAMINOPHEN
     Indication: Headache

REACTIONS (6)
  - Pneumonitis aspiration [Fatal]
  - Tuberculoma of central nervous system [Fatal]
  - Encephalitis [Fatal]
  - Cardiac failure [Fatal]
  - Cardiac arrest [Fatal]
  - Condition aggravated [Fatal]
